FAERS Safety Report 21325745 (Version 1)
Quarter: 2022Q3

REPORT INFORMATION
  Report Type: Spontaneous
  Country: DE (occurrence: None)
  Receive Date: 20220913
  Receipt Date: 20220913
  Transmission Date: 20221026
  Serious: Yes (Other)
  Sender: FDA-Public Use
  Company Number: 2022A310793

PATIENT
  Sex: Female

DRUGS (1)
  1. ONGLYZA [Suspect]
     Active Substance: SAXAGLIPTIN HYDROCHLORIDE
     Route: 048

REACTIONS (5)
  - Hypertension [Unknown]
  - Tachycardia [Unknown]
  - Renal failure [Unknown]
  - Erythema [Unknown]
  - Arthralgia [Unknown]
